FAERS Safety Report 7768865-3 (Version None)
Quarter: 2011Q3

REPORT INFORMATION
  Report Type: 
  Country: None (occurrence: None)
  Receive Date: 20110922
  Receipt Date: 20110509
  Transmission Date: 20111222
  Serious: Yes (Hospitalization)
  Sender: FDA-Public Use
  Company Number: US-ASTRAZENECA-2011SE27084

PATIENT
  Sex: Female

DRUGS (13)
  1. LANTUS [Concomitant]
     Indication: DIABETES MELLITUS
     Dosage: 70 CC DAILY
  2. PREMARIN [Concomitant]
  3. NEURONTIN [Concomitant]
  4. SINGULAIR [Concomitant]
  5. DIOVAN [Concomitant]
  6. LEVOTHROID [Concomitant]
  7. GLUCOTROL [Concomitant]
  8. SEROQUEL [Suspect]
     Indication: DEPRESSION
     Route: 048
     Dates: start: 20070101
  9. BYETTA [Concomitant]
     Indication: DIABETES MELLITUS
     Dosage: 10 CC DAILY
  10. FLEXERIL [Concomitant]
  11. ACIPHEX [Concomitant]
  12. ATENOLOL [Concomitant]
  13. PROCARDIA XL [Concomitant]

REACTIONS (1)
  - PNEUMONIA [None]
